FAERS Safety Report 4938709-3 (Version None)
Quarter: 2006Q1

REPORT INFORMATION
  Report Type: 
  Country: None (occurrence: None)
  Receive Date: 20060127
  Receipt Date: 20051107
  Transmission Date: 20060701
  Serious: Yes (Other)
  Sender: FDA-Public Use
  Company Number: 2005153516

PATIENT
  Age: 77 Year
  Sex: Male
  Weight: 77.1115 kg

DRUGS (8)
  1. LYRICA [Suspect]
     Indication: BACK PAIN
     Dosage: 75 MG (25 MG, 3 IN 1 D), ORAL
     Route: 048
     Dates: start: 20051028
  2. GLUCOVANCE [Concomitant]
  3. ALTACE [Concomitant]
  4. LIPITOR [Concomitant]
  5. LANOXIN [Concomitant]
  6. ADDERALL 10 [Concomitant]
  7. ASPIRIN [Concomitant]
  8. MOTRIN [Concomitant]

REACTIONS (1)
  - BLOOD GLUCOSE INCREASED [None]
